FAERS Safety Report 18618874 (Version 1)
Quarter: 2020Q4

REPORT INFORMATION
  Report Type: Spontaneous
  Country: US (occurrence: US)
  Receive Date: 20201215
  Receipt Date: 20201215
  Transmission Date: 20210114
  Serious: No
  Sender: FDA-Public Use
  Company Number: US-GLAXOSMITHKLINE-US2020243350

PATIENT
  Age: 39 Year
  Sex: Female

DRUGS (1)
  1. BENLYSTA [Suspect]
     Active Substance: BELIMUMAB
     Indication: LUPUS NEPHRITIS
     Dosage: 200 MG/ML, WE
     Route: 058
     Dates: start: 202010

REACTIONS (12)
  - Injection site urticaria [Unknown]
  - Swelling [Unknown]
  - Injection site pain [Recovered/Resolved]
  - Injection site bruising [Unknown]
  - Vomiting [Recovered/Resolved]
  - Product use in unapproved indication [Unknown]
  - Underdose [Unknown]
  - Nausea [Recovered/Resolved]
  - Discomfort [Unknown]
  - Wrong technique in device usage process [Unknown]
  - Product communication issue [Unknown]
  - Injection site haemorrhage [Recovered/Resolved]

NARRATIVE: CASE EVENT DATE: 20201207
